FAERS Safety Report 13967325 (Version 6)
Quarter: 2025Q4

REPORT INFORMATION
  Report Type: Spontaneous
  Country: EU (occurrence: EU)
  Receive Date: 20170914
  Receipt Date: 20251018
  Transmission Date: 20260118
  Serious: Yes (Life-Threatening, Hospitalization, Other)
  Sender: AUROBINDO
  Company Number: EU-AUROBINDO-AUR-APL-2012-01729

PATIENT
  Age: 91 Year
  Sex: Female

DRUGS (19)
  1. LEVOFLOXACIN [Interacting]
     Active Substance: LEVOFLOXACIN
     Indication: Bacterial infection
     Dosage: 500 MILLIGRAM, DAILY
     Route: 048
  2. ENALAPRIL [Interacting]
     Active Substance: ENALAPRIL
     Indication: Hypertension
     Dosage: 20 MG,ONCE A DAY,
     Route: 048
  3. ENALAPRIL [Interacting]
     Active Substance: ENALAPRIL
     Indication: Hypertension
  4. ENALAPRIL MALEATE\HYDROCHLOROTHIAZIDE [Interacting]
     Active Substance: ENALAPRIL MALEATE\HYDROCHLOROTHIAZIDE
     Indication: Hypertension
     Dosage: 32.5 MILLIGRAM (20MG/12.5 MG), ONCE A DAY
     Route: 048
  5. ENALAPRIL MALEATE\HYDROCHLOROTHIAZIDE [Interacting]
     Active Substance: ENALAPRIL MALEATE\HYDROCHLOROTHIAZIDE
     Dosage: 20 MILLIGRAM (20MG/12.5 MG), ONCE A DAY
     Route: 048
  6. LANSOPRAZOLE [Suspect]
     Active Substance: LANSOPRAZOLE
     Indication: Product used for unknown indication
     Dosage: 30 MILLIGRAM, DAILY
     Route: 065
  7. METFORMIN [Interacting]
     Active Substance: METFORMIN HYDROCHLORIDE
     Indication: Type 2 diabetes mellitus
     Dosage: UNK
     Route: 065
  8. BUPRENORPHINE [Interacting]
     Active Substance: BUPRENORPHINE
     Indication: Pain
     Dosage: 35 MICROGRAM, EVERY HOUR
     Route: 062
  9. GLYBURIDE [Interacting]
     Active Substance: GLYBURIDE
     Indication: Type 2 diabetes mellitus
     Dosage: 7.5 MILLIGRAM, ONCE A DAY (2.5 MG, 3/DAY)
     Route: 048
  10. GLYBURIDE\METFORMIN [Interacting]
     Active Substance: GLYBURIDE\METFORMIN
     Indication: Type 2 diabetes mellitus
     Dosage: 402.5 MILLIGRAM, 3 TIMES A DAY (400 MG/2.5 MG, 3 PER DAY)
     Route: 048
  11. GLYBURIDE\METFORMIN [Interacting]
     Active Substance: GLYBURIDE\METFORMIN
     Dosage: 1200 MILLIGRAM, ONCE A DAY (400 MG, 3/DAY/400MG/2.5MG)
     Route: 048
  12. NADROPARIN CALCIUM [Interacting]
     Active Substance: NADROPARIN CALCIUM
     Indication: Ischaemic stroke
     Dosage: 3800 INTERNATIONAL UNIT, DAILY
     Route: 058
  13. NADROPARIN CALCIUM [Interacting]
     Active Substance: NADROPARIN CALCIUM
     Indication: Anticoagulant therapy
  14. TRAMADOL [Interacting]
     Active Substance: TRAMADOL
     Indication: Pain
     Dosage: UNK, AS NECESSARY
     Route: 065
  15. ASPIRIN [Concomitant]
     Active Substance: ASPIRIN
     Indication: Antiplatelet therapy
     Dosage: 100 MILLIGRAM, ONCE A DAY
     Route: 048
  16. ASPIRIN [Concomitant]
     Active Substance: ASPIRIN
     Indication: Anticoagulant therapy
  17. Eparina [Concomitant]
     Indication: Product used for unknown indication
     Dosage: UNK
     Route: 065
  18. HEPARIN [Concomitant]
     Active Substance: HEPARIN SODIUM
     Indication: Middle cerebral artery stroke
     Dosage: UNK (DOSING DETAIL NOT PROVIDED)
     Route: 065
  19. INSULIN NOS [Concomitant]
     Active Substance: INSULIN NOS
     Indication: Product used for unknown indication
     Dosage: UNK
     Route: 065

REACTIONS (9)
  - Coma [Recovered/Resolved]
  - Hypoglycaemia [Recovered/Resolved]
  - Localised infection [Unknown]
  - Peripheral artery thrombosis [Unknown]
  - Hypoglycaemic coma [Recovered/Resolved]
  - Skin warm [Recovered/Resolved]
  - Hyperhidrosis [Recovered/Resolved]
  - Feeling hot [Recovered/Resolved]
  - Drug interaction [Unknown]
